FAERS Safety Report 5590714-2 (Version None)
Quarter: 2008Q1

REPORT INFORMATION
  Report Type: 
  Country: None (occurrence: None)
  Receive Date: 20080114
  Receipt Date: 20080107
  Transmission Date: 20080703
  Serious: Yes (Other)
  Sender: FDA-Public Use
  Company Number: US-PFIZER INC-2007094865

PATIENT
  Age: 58 Year
  Sex: Male
  Weight: 64.4 kg

DRUGS (10)
  1. SUTENT [Suspect]
     Indication: METASTATIC RENAL CELL CARCINOMA
     Route: 048
  2. LORTAB [Concomitant]
     Indication: PAIN
     Route: 048
  3. TENORMIN [Concomitant]
     Route: 048
  4. ALTACE [Concomitant]
     Route: 048
  5. NORVASC [Concomitant]
     Route: 048
  6. DIABETA [Concomitant]
     Route: 048
  7. GLUCOPHAGE [Concomitant]
     Route: 048
  8. LIPITOR [Concomitant]
     Route: 048
  9. CELEXA [Concomitant]
     Route: 048
  10. NIASPAN [Concomitant]
     Route: 048

REACTIONS (6)
  - BLOOD BILIRUBIN INCREASED [None]
  - BLOOD CREATININE INCREASED [None]
  - CHOLELITHIASIS [None]
  - HEPATIC ENZYME INCREASED [None]
  - HEPATITIS [None]
  - NAUSEA [None]
